FAERS Safety Report 10892714 (Version 3)
Quarter: 2015Q2

REPORT INFORMATION
  Report Type: Spontaneous
  Country: US (occurrence: US)
  Receive Date: 20150306
  Receipt Date: 20150402
  Transmission Date: 20150821
  Serious: Yes (Hospitalization, Other)
  Sender: FDA-Public Use
  Company Number: US-PFIZER INC-2015080665

PATIENT
  Sex: Female

DRUGS (2)
  1. LYRICA [Suspect]
     Active Substance: PREGABALIN
     Indication: FIBROMYALGIA
     Dosage: 50 MG AM, 75 MG 12 NOON, 100 MG HS)
     Dates: end: 20150302
  2. LYRICA [Suspect]
     Active Substance: PREGABALIN
     Indication: NEURALGIA

REACTIONS (9)
  - Hyperhidrosis [Unknown]
  - Malaise [Not Recovered/Not Resolved]
  - Nasopharyngitis [Unknown]
  - Brain neoplasm [Not Recovered/Not Resolved]
  - Oropharyngeal pain [Unknown]
  - Drug withdrawal syndrome [Unknown]
  - Depression [Unknown]
  - Suicidal ideation [Recovered/Resolved]
  - Insomnia [Unknown]
